FAERS Safety Report 6866928-8 (Version None)
Quarter: 2010Q3

REPORT INFORMATION
  Report Type: 
  Country: None (occurrence: None)
  Receive Date: 20100722
  Receipt Date: 20100722
  Transmission Date: 20110219
  Serious: No
  Sender: FDA-Public Use
  Company Number: None

PATIENT

DRUGS (1)
  1. DERMA-SMOOTHE/FS [Suspect]
     Indication: PSORIASIS
     Dates: start: 20091201

REACTIONS (1)
  - ALOPECIA [None]
